FAERS Safety Report 6085888-3 (Version None)
Quarter: 2009Q1

REPORT INFORMATION
  Report Type: 
  Country: None (occurrence: None)
  Receive Date: 20090220
  Receipt Date: 20090218
  Transmission Date: 20090719
  Serious: Yes (Hospitalization, Other)
  Sender: FDA-Public Use
  Company Number: CH-WYE-G03149909

PATIENT
  Sex: Female

DRUGS (7)
  1. TAZOBACTAM [Suspect]
     Indication: INFECTION
     Dosage: UNKNOWN
     Dates: start: 20090208
  2. CLEXANE [Suspect]
  3. OLANZAPINE [Suspect]
  4. PARACETAMOL [Suspect]
  5. AMLODIPINE [Suspect]
  6. LITHIOFOR [Suspect]
  7. PANTOZOL [Suspect]

REACTIONS (1)
  - HYPERNATRAEMIA [None]
